FAERS Safety Report 13032127 (Version 1)
Quarter: 2016Q4

REPORT INFORMATION
  Report Type: Spontaneous
  Country: DK (occurrence: DK)
  Receive Date: 20161215
  Receipt Date: 20161215
  Transmission Date: 20170207
  Serious: Yes (Hospitalization)
  Sender: FDA-Public Use
  Company Number: DK-TEVA-718464ACC

PATIENT
  Sex: Female

DRUGS (3)
  1. QUETIAPINE. [Concomitant]
     Active Substance: QUETIAPINE
  2. VENLAFAXIN [Concomitant]
     Active Substance: VENLAFAXINE HYDROCHLORIDE
  3. LITHIUM. [Suspect]
     Active Substance: LITHIUM
     Indication: BIPOLAR DISORDER
     Route: 048
     Dates: start: 2014, end: 2014

REACTIONS (12)
  - Toxicity to various agents [Unknown]
  - Nausea [Unknown]
  - Dry mouth [Unknown]
  - Dizziness [Unknown]
  - Memory impairment [Unknown]
  - Head discomfort [Unknown]
  - Fatigue [Unknown]
  - Pollakiuria [Unknown]
  - Abdominal pain [Unknown]
  - Decreased appetite [Unknown]
  - Gait disturbance [Unknown]
  - Somnolence [Unknown]

NARRATIVE: CASE EVENT DATE: 2014
